FAERS Safety Report 17581583 (Version 1)
Quarter: 2020Q1

REPORT INFORMATION
  Report Type: Spontaneous
  Country: FR (occurrence: FR)
  Receive Date: 20200325
  Receipt Date: 20200325
  Transmission Date: 20200409
  Serious: Yes (Disabling)
  Sender: FDA-Public Use
  Company Number: FR-LEO PHARMA-328785

PATIENT
  Age: 11 Year
  Sex: Male

DRUGS (5)
  1. PROTOPIC [Suspect]
     Active Substance: TACROLIMUS
     Indication: ECZEMA
     Dosage: UNK
     Dates: start: 2013
  2. PROTOPIC [Suspect]
     Active Substance: TACROLIMUS
     Dosage: UNK
     Dates: start: 2011
  3. LOCOID [Suspect]
     Active Substance: HYDROCORTISONE BUTYRATE
     Indication: ECZEMA
  4. HYDROCORTANCYL [Suspect]
     Active Substance: PREDNISONE
     Indication: ECZEMA
     Dosage: UNK
  5. MILDISON [Suspect]
     Active Substance: HYDROCORTISONE
     Indication: ECZEMA

REACTIONS (6)
  - Endocrine disorder [Unknown]
  - Asthma [Unknown]
  - Hyperaesthesia [Unknown]
  - Wheelchair user [Recovered/Resolved]
  - Immune system disorder [Unknown]
  - Dysaesthesia [Unknown]

NARRATIVE: CASE EVENT DATE: 2011
